FAERS Safety Report 25886356 (Version 1)
Quarter: 2025Q4

REPORT INFORMATION
  Report Type: Spontaneous
  Country: US (occurrence: US)
  Receive Date: 20251006
  Receipt Date: 20251006
  Transmission Date: 20260118
  Serious: Yes (Other)
  Sender: TEVA
  Company Number: US-TEVA-VS-3378413

PATIENT
  Sex: Female

DRUGS (1)
  1. UZEDY [Suspect]
     Active Substance: RISPERIDONE
     Indication: Schizophrenia
     Route: 065

REACTIONS (2)
  - Hyperprolactinaemia [Unknown]
  - Galactorrhoea [Unknown]
